FAERS Safety Report 8078521-2 (Version None)
Quarter: 2012Q1

REPORT INFORMATION
  Report Type: 
  Country: None (occurrence: None)
  Receive Date: 20120127
  Receipt Date: 20120127
  Transmission Date: 20120608
  Serious: Yes (Hospitalization)
  Sender: FDA-Public Use
  Company Number: None

PATIENT
  Age: 65 Year
  Sex: Male
  Weight: 74.9 kg

DRUGS (2)
  1. NAPROXEN [Suspect]
     Indication: PAIN
     Dosage: 1 TAB PRN PO
     Route: 048
     Dates: start: 19990301, end: 20111206
  2. NABUMETON [Suspect]
     Indication: PAIN
     Dosage: 1000 MG EVERY DAY PO
     Route: 048
     Dates: start: 19990301, end: 20111206

REACTIONS (3)
  - GASTRIC HAEMORRHAGE [None]
  - GASTRIC ULCER [None]
  - HAEMOGLOBIN DECREASED [None]
